FAERS Safety Report 15132185 (Version 1)
Quarter: 2018Q3

REPORT INFORMATION
  Report Type: Spontaneous
  Country: DE (occurrence: DE)
  Receive Date: 20180711
  Receipt Date: 20180711
  Transmission Date: 20181010
  Serious: Yes (Hospitalization, Other)
  Sender: FDA-Public Use
  Company Number: PHHY2018DE008905

PATIENT
  Sex: Male
  Weight: 15 kg

DRUGS (2)
  1. EXJADE [Suspect]
     Active Substance: DEFERASIROX
     Indication: THALASSAEMIA
     Dosage: 20?23 MG/KG BODY WEIGHT /DAY
     Route: 065
     Dates: start: 2017
  2. EXJADE [Suspect]
     Active Substance: DEFERASIROX
     Dosage: 90 MG, (17MG/KG BODYWEIGHT/DAY)
     Route: 048
     Dates: start: 20170217, end: 20180220

REACTIONS (13)
  - Blood creatinine decreased [Unknown]
  - Serum ferritin increased [Unknown]
  - Fanconi syndrome acquired [Recovering/Resolving]
  - Gait disturbance [Recovered/Resolved]
  - Hypoglycaemia [Recovered/Resolved]
  - Renal tubular necrosis [Recovered/Resolved]
  - Carnitine deficiency [Recovering/Resolving]
  - Dehydration [Unknown]
  - Proteinuria [Recovering/Resolving]
  - Micturition urgency [Unknown]
  - Renal tubular injury [Recovering/Resolving]
  - Metabolic disorder [Unknown]
  - Metabolic acidosis [Unknown]

NARRATIVE: CASE EVENT DATE: 20180127
